FAERS Safety Report 12668001 (Version 1)
Quarter: 2016Q3

REPORT INFORMATION
  Report Type: Spontaneous
  Country: FR (occurrence: FR)
  Receive Date: 20160819
  Receipt Date: 20160819
  Transmission Date: 20161109
  Serious: Yes (Other)
  Sender: FDA-Public Use
  Company Number: FR-HQ SPECIALTY-FR-2016INT000795

PATIENT
  Age: 58 Year
  Sex: Female

DRUGS (3)
  1. REMICADE [Concomitant]
     Active Substance: INFLIXIMAB
     Indication: RHEUMATOID ARTHRITIS
     Dosage: UNK
  2. METHOTREXATE SODIUM. [Suspect]
     Active Substance: METHOTREXATE SODIUM
     Indication: RHEUMATOID ARTHRITIS
     Dosage: 1.4286 MG (10 MG,1 IN 1 W)
  3. OMEPRAZOLE. [Concomitant]
     Active Substance: OMEPRAZOLE
     Indication: PRODUCT USED FOR UNKNOWN INDICATION
     Dosage: EVENING (40 MG,1 D)

REACTIONS (11)
  - Nausea [Unknown]
  - Loss of consciousness [Unknown]
  - Pelvic fracture [Unknown]
  - Rib fracture [Unknown]
  - Upper limb fracture [Unknown]
  - Fatigue [Unknown]
  - Spinal fracture [Unknown]
  - Malaise [Unknown]
  - Fall [Unknown]
  - Ligament sprain [Unknown]
  - Sternal fracture [Unknown]

NARRATIVE: CASE EVENT DATE: 20151220
